FAERS Safety Report 23443869 (Version 1)
Quarter: 2024Q1

REPORT INFORMATION
  Report Type: Report from Study
  Country: MX (occurrence: MX)
  Receive Date: 20240125
  Receipt Date: 20240125
  Transmission Date: 20240409
  Serious: Yes (Death, Hospitalization)
  Sender: FDA-Public Use
  Company Number: MX-002147023-NVSC2023MX236236

PATIENT
  Age: 61 Year
  Sex: Male

DRUGS (1)
  1. TASIGNA [Suspect]
     Active Substance: NILOTINIB
     Indication: Chronic myeloid leukaemia
     Dosage: UNK
     Route: 048

REACTIONS (7)
  - Pneumonia [Fatal]
  - Traumatic lung injury [Fatal]
  - Renal failure [Fatal]
  - Pulmonary oedema [Fatal]
  - Infarction [Fatal]
  - Embolism [Fatal]
  - Asthma [Unknown]

NARRATIVE: CASE EVENT DATE: 20231101
